FAERS Safety Report 19960252 (Version 1)
Quarter: 2021Q4

REPORT INFORMATION
  Report Type: Report from Study
  Country: MX (occurrence: MX)
  Receive Date: 20211015
  Receipt Date: 20211015
  Transmission Date: 20220303
  Serious: Yes (Other)
  Sender: FDA-Public Use
  Company Number: MX-NOVARTISPH-NVSC2021MX235898

PATIENT
  Age: 76 Year
  Sex: Male
  Weight: 75 kg

DRUGS (1)
  1. METFORMIN HYDROCHLORIDE\VILDAGLIPTIN [Suspect]
     Active Substance: METFORMIN HYDROCHLORIDE\VILDAGLIPTIN
     Indication: Diabetes mellitus
     Dosage: 1 DF, BID (START: 8 YEARS AGO)
     Route: 048

REACTIONS (5)
  - Lung disorder [Unknown]
  - COVID-19 [Recovered/Resolved with Sequelae]
  - Fatigue [Unknown]
  - Agitation [Unknown]
  - Illness [Unknown]

NARRATIVE: CASE EVENT DATE: 20200701
